FAERS Safety Report 6539231-3 (Version None)
Quarter: 2010Q1

REPORT INFORMATION
  Report Type: 
  Country: None (occurrence: None)
  Receive Date: 20100112
  Receipt Date: 20091230
  Transmission Date: 20100710
  Serious: Yes (Other)
  Sender: FDA-Public Use
  Company Number: GB-DEXPHARM-20092224

PATIENT

DRUGS (1)
  1. OMEPRAZOLE [Suspect]
     Dosage: 20 MG, ORAL
     Route: 048

REACTIONS (3)
  - DRUG HYPERSENSITIVITY [None]
  - FAECES HARD [None]
  - FOOD INTOLERANCE [None]
